FAERS Safety Report 14220577 (Version 2)
Quarter: 2017Q4

REPORT INFORMATION
  Report Type: Spontaneous
  Country: US (occurrence: US)
  Receive Date: 20171124
  Receipt Date: 20171213
  Transmission Date: 20180321
  Serious: Yes (Other)
  Sender: FDA-Public Use
  Company Number: US-ABBVIE-17P-163-1858677-00

PATIENT
  Sex: Female

DRUGS (1)
  1. LUPRON DEPOT [Suspect]
     Active Substance: LEUPROLIDE ACETATE
     Indication: PRODUCT USED FOR UNKNOWN INDICATION
     Route: 050

REACTIONS (7)
  - Laparoscopy [Unknown]
  - Endometriosis [Unknown]
  - Polycystic ovaries [Unknown]
  - Pain [Not Recovered/Not Resolved]
  - Ovarian cyst [Unknown]
  - Muscle spasms [Unknown]
  - Menorrhagia [Unknown]
